FAERS Safety Report 8528698 (Version 2)
Quarter: 2013Q2

REPORT INFORMATION
  Report Type: Spontaneous
  Country: US (occurrence: US)
  Receive Date: 20120425
  Receipt Date: 20130528
  Transmission Date: 20140414
  Serious: Yes (Hospitalization)
  Sender: FDA-Public Use
  Company Number: US-BRISTOL-MYERS SQUIBB COMPANY-16531105

PATIENT
  Sex: Male

DRUGS (1)
  1. KOMBIGLYZE XR [Suspect]
     Dosage: 1 DOSAGE FORM = 5/1000 (UNITS NOT SPECIFIED)

REACTIONS (2)
  - Pancreatitis [Unknown]
  - Dehydration [Unknown]
